FAERS Safety Report 5816054-1 (Version None)
Quarter: 2008Q3

REPORT INFORMATION
  Report Type: 
  Country: None (occurrence: None)
  Receive Date: 20080716
  Receipt Date: 20080716
  Transmission Date: 20090109
  Serious: Yes (Life-Threatening, Hospitalization)
  Sender: FDA-Public Use
  Company Number: None

PATIENT
  Sex: Male
  Weight: 91.173 kg

DRUGS (14)
  1. VANCOMYCIN [Suspect]
     Indication: SCROTAL INFECTION
     Dosage: 1 GRAM ONCE IV DRIP
     Route: 041
     Dates: start: 20080623, end: 20080623
  2. CLINDAMYCIN 600MG HOSPIRA [Suspect]
     Indication: SCROTAL INFECTION
     Dosage: 600MG ONCE IV DRIP
     Route: 041
     Dates: start: 20080623, end: 20080623
  3. IRON SULFATETHIAMIN COMPOUND TAB [Concomitant]
  4. METOPROLOL TARTRATE [Concomitant]
  5. PROZAC [Concomitant]
  6. PROTONIX [Concomitant]
  7. PLAVIX [Concomitant]
  8. METFORMIN HCL [Concomitant]
  9. LISINOPRIL [Concomitant]
  10. LIPITOR [Concomitant]
  11. LEVEMIR [Concomitant]
  12. LASIX [Concomitant]
  13. GLYBURIDE [Concomitant]
  14. CARDIZEM [Concomitant]

REACTIONS (3)
  - ANAPHYLACTIC REACTION [None]
  - RASH ERYTHEMATOUS [None]
  - RESPIRATORY ARREST [None]
